FAERS Safety Report 5628737-7 (Version None)
Quarter: 2008Q1

REPORT INFORMATION
  Report Type: 
  Country: None (occurrence: None)
  Receive Date: 20080215
  Receipt Date: 20080206
  Transmission Date: 20080703
  Serious: Yes (Other)
  Sender: FDA-Public Use
  Company Number: US-PFIZER INC-2008012495

PATIENT
  Sex: Female
  Weight: 74.4 kg

DRUGS (5)
  1. CHANTIX [Suspect]
     Indication: SMOKING CESSATION THERAPY
  2. TOPROL-XL [Concomitant]
     Indication: HYPERTENSION
  3. VERAPAMIL [Concomitant]
     Indication: HYPERTENSION
  4. LIPITOR [Concomitant]
  5. FOSAMAX [Concomitant]

REACTIONS (4)
  - ABNORMAL DREAMS [None]
  - CHEST DISCOMFORT [None]
  - HYPERTROPHIC CARDIOMYOPATHY [None]
  - NAUSEA [None]
